FAERS Safety Report 5103877-X (Version None)
Quarter: 2006Q3

REPORT INFORMATION
  Report Type: 
  Country: None (occurrence: None)
  Receive Date: 20060913
  Receipt Date: 20060904
  Transmission Date: 20061208
  Serious: Yes (Other)
  Sender: FDA-Public Use
  Company Number: GB-GLAXOSMITHKLINE-B0437154A

PATIENT
  Age: 31 Year
  Sex: Female

DRUGS (8)
  1. SERETIDE [Suspect]
     Indication: ASTHMA
     Route: 055
     Dates: start: 20020701, end: 20051201
  2. BECLOMETHASONE DIPROPIONATE [Suspect]
     Indication: DRUG USE FOR UNKNOWN INDICATION
     Route: 055
     Dates: start: 19930101
  3. ALBUTEROL SPIROS [Concomitant]
  4. MONTELUKAST [Concomitant]
  5. RANITIDINE [Concomitant]
  6. AMITRIPTYLINE HCL [Concomitant]
  7. PREDNISOLONE [Concomitant]
  8. CICLESONIDE [Concomitant]

REACTIONS (2)
  - ADRENAL SUPPRESSION [None]
  - ADVERSE EVENT [None]
